FAERS Safety Report 9903807 (Version 2)
Quarter: 2014Q1

REPORT INFORMATION
  Report Type: Spontaneous
  Country: GB (occurrence: GB)
  Receive Date: 20140218
  Receipt Date: 20140310
  Transmission Date: 20141002
  Serious: Yes (Other)
  Sender: FDA-Public Use
  Company Number: GB-BIOGENIDEC-2014BI014020

PATIENT
  Age: 49 Year
  Sex: Female

DRUGS (1)
  1. AVONEX [Suspect]
     Indication: PRODUCT USED FOR UNKNOWN INDICATION
     Route: 030
     Dates: start: 20080211

REACTIONS (1)
  - Ovarian cancer stage III [Unknown]
